FAERS Safety Report 25201142 (Version 1)
Quarter: 2025Q2

REPORT INFORMATION
  Report Type: Spontaneous
  Country: FR (occurrence: FR)
  Receive Date: 20250416
  Receipt Date: 20250416
  Transmission Date: 20250716
  Serious: Yes (Other)
  Sender: SANOFI AVENTIS
  Company Number: None

PATIENT
  Age: 31 Year
  Sex: Male
  Weight: 66 kg

DRUGS (1)
  1. MOZOBIL [Suspect]
     Active Substance: PLERIXAFOR
     Indication: Peripheral blood stem cell apheresis
     Route: 058
     Dates: start: 20250318, end: 20250318

REACTIONS (4)
  - Laryngeal dyspnoea [Recovered/Resolved]
  - Dyspnoea [Recovered/Resolved]
  - Diarrhoea [Recovered/Resolved]
  - Abdominal pain [Recovered/Resolved]

NARRATIVE: CASE EVENT DATE: 20250318
